FAERS Safety Report 16732802 (Version 1)
Quarter: 2019Q3

REPORT INFORMATION
  Report Type: Spontaneous
  Country: TR (occurrence: TR)
  Receive Date: 20190823
  Receipt Date: 20190823
  Transmission Date: 20191005
  Serious: No
  Sender: FDA-Public Use
  Company Number: TR-ALKEM LABORATORIES LIMITED-TR-ALKEM-2019-04557

PATIENT
  Age: 42 Year
  Sex: Female

DRUGS (2)
  1. RASAGILINE MESYLATE. [Suspect]
     Active Substance: RASAGILINE MESYLATE
     Indication: PARKINSON^S DISEASE
     Dosage: 1 MILLIGRAM, QD
     Route: 065
  2. RASAGILINE MESYLATE. [Suspect]
     Active Substance: RASAGILINE MESYLATE
     Dosage: 1 MILLIGRAM, QD, 15 DAYS LATER
     Route: 065

REACTIONS (1)
  - Female orgasmic disorder [Recovered/Resolved]
